FAERS Safety Report 8871467 (Version 3)
Quarter: 2013Q1

REPORT INFORMATION
  Report Type: Spontaneous
  Country: DK (occurrence: DK)
  Receive Date: 20121029
  Receipt Date: 20130326
  Transmission Date: 20140127
  Serious: Yes (Hospitalization)
  Sender: FDA-Public Use
  Company Number: DK-MUTUAL PHARMACEUTICAL COMPANY, INC.-ALLP20120028

PATIENT
  Sex: Female

DRUGS (9)
  1. ALLOPURINOL 100 MG [Suspect]
     Indication: GOUTY ARTHRITIS
     Route: 048
     Dates: start: 2008, end: 20121005
  2. BURINEX (BUMETANID) 1 MG [Suspect]
     Indication: POLYURIA
     Route: 048
     Dates: start: 2007
  3. ADALAT (NIFEDIPIN) [Concomitant]
  4. SPARKAL (AMILORIDHYDROCHLORID DIHYDRAT, HYDROCHLORTHIAZID, VANDFRIT) [Concomitant]
     Indication: POLYURIA
  5. KALEORID (KALIUMCHLORID) [Concomitant]
     Indication: MINERAL SUPPLEMENTATION
  6. BETOLVEX (CYANOCOBALAMIN, CYANOCOBALAMIN-TANNIN-KOMPLEX) [Concomitant]
     Indication: VITAMIN SUPPLEMENTATION
  7. CALCIUM [Concomitant]
     Indication: VITAMIN SUPPLEMENTATION
  8. PROLIA (DENOSUMAB) [Concomitant]
     Indication: OSTEOPOROSIS POSTMENOPAUSAL
  9. AMLODIPIN ^ACTAVIS^ (AMLODIPINMESILATMONOHYDRAT) [Concomitant]
     Indication: HYPERTENSION

REACTIONS (7)
  - Dizziness [Recovering/Resolving]
  - Fall [Recovering/Resolving]
  - Dehydration [Recovered/Resolved]
  - Renal impairment [Recovering/Resolving]
  - Blood creatine increased [Recovered/Resolved]
  - Nausea [Recovering/Resolving]
  - Vomiting [Recovering/Resolving]
